FAERS Safety Report 7727382-7 (Version None)
Quarter: 2011Q3

REPORT INFORMATION
  Report Type: 
  Country: None (occurrence: None)
  Receive Date: 20110902
  Receipt Date: 20110829
  Transmission Date: 20111222
  Serious: Yes (Other)
  Sender: FDA-Public Use
  Company Number: BR-PFIZER INC-2011201557

PATIENT
  Age: 39 Year
  Sex: Female
  Weight: 53.5 kg

DRUGS (1)
  1. NORDETTE-21 [Suspect]
     Indication: CONTRACEPTION
     Dosage: 1 DF, 1X/DAY
     Route: 048
     Dates: end: 20110818

REACTIONS (3)
  - AMENORRHOEA [None]
  - UTERINE LEIOMYOMA [None]
  - ABDOMINAL SYMPTOM [None]
